FAERS Safety Report 25415464 (Version 6)
Quarter: 2025Q4

REPORT INFORMATION
  Report Type: Report from Study
  Country: US (occurrence: US)
  Receive Date: 20250610
  Receipt Date: 20251025
  Transmission Date: 20260117
  Serious: Yes (Hospitalization)
  Sender: ABBVIE
  Company Number: US-ABBVIE-6314755

PATIENT
  Age: 64 Year
  Sex: Female
  Weight: 68.945 kg

DRUGS (4)
  1. RINVOQ [Suspect]
     Active Substance: UPADACITINIB
     Indication: Rheumatoid arthritis
     Dosage: FORM STRENGTH:15 MILLIGRAM
     Route: 048
     Dates: start: 202412, end: 20250526
  2. RINVOQ [Suspect]
     Active Substance: UPADACITINIB
     Indication: Rheumatoid arthritis
     Dosage: LAST ADMIN DATE:2024
     Route: 048
     Dates: start: 202408
  3. SOLU-MEDROL [Concomitant]
     Active Substance: METHYLPREDNISOLONE SODIUM SUCCINATE
     Indication: Rheumatoid arthritis
  4. FENOFIBRATE [Concomitant]
     Active Substance: FENOFIBRATE
     Indication: Blood triglycerides increased

REACTIONS (16)
  - C-reactive protein increased [Not Recovered/Not Resolved]
  - Sinus tachycardia [Recovering/Resolving]
  - Vertigo [Recovering/Resolving]
  - Red blood cell count increased [Recovered/Resolved]
  - Vestibular neuronitis [Recovering/Resolving]
  - Dizziness [Recovering/Resolving]
  - Arrhythmia [Not Recovered/Not Resolved]
  - Weight increased [Not Recovered/Not Resolved]
  - Platelet count increased [Not Recovered/Not Resolved]
  - Blood lactic acid increased [Recovered/Resolved]
  - White blood cell count increased [Recovered/Resolved]
  - Illness [Unknown]
  - COVID-19 [Unknown]
  - Immunodeficiency [Unknown]
  - Palpitations [Not Recovered/Not Resolved]
  - Chest pain [Not Recovered/Not Resolved]

NARRATIVE: CASE EVENT DATE: 20241201
